FAERS Safety Report 25902406 (Version 1)
Quarter: 2025Q4

REPORT INFORMATION
  Report Type: Spontaneous
  Country: US (occurrence: None)
  Receive Date: 20251009
  Receipt Date: 20251009
  Transmission Date: 20260118
  Serious: Yes (Hospitalization)
  Sender: FDA-CTU
  Company Number: None

PATIENT
  Age: 73 Year
  Sex: Male

DRUGS (1)
  1. LENALIDOMIDE [Suspect]
     Active Substance: LENALIDOMIDE
     Dosage: OTHER FREQUENCY : DAILY FOR 21 DAYS, THEN OFF 7 D;?

REACTIONS (4)
  - Balance disorder [None]
  - Fall [None]
  - Hip fracture [None]
  - Therapy interrupted [None]
